FAERS Safety Report 4305934-4 (Version None)
Quarter: 2004Q1

REPORT INFORMATION
  Report Type: 
  Country: None (occurrence: None)
  Receive Date: 20040225
  Receipt Date: 20040210
  Transmission Date: 20041129
  Serious: Yes (Hospitalization)
  Sender: FDA-Public Use
  Company Number: 2004-DE-00685GD

PATIENT
  Age: 14 Year
  Sex: Female

DRUGS (2)
  1. ACETAMINOPHEN [Suspect]
     Dosage: INGESTION OF ACETAMINOPHEN
  2. ACETYLCYSTEINE [Suspect]
     Indication: DRUG TOXICITY
     Dosage: ERRONEOUSLY 40 G INSTEAD OF 8.25 G

REACTIONS (10)
  - ANGIONEUROTIC OEDEMA [None]
  - EOSINOPHILIA [None]
  - FLUSHING [None]
  - HYPOTENSION [None]
  - INTERNATIONAL NORMALISED RATIO INCREASED [None]
  - MEDICATION ERROR [None]
  - OVERDOSE [None]
  - PRURITUS [None]
  - SOMNOLENCE [None]
  - VOMITING [None]
